FAERS Safety Report 5718330-X (Version None)
Quarter: 2008Q2

REPORT INFORMATION
  Report Type: 
  Country: None (occurrence: None)
  Receive Date: 20080425
  Receipt Date: 20080417
  Transmission Date: 20081010
  Serious: Yes (Other)
  Sender: FDA-Public Use
  Company Number: DE-GILEAD-2008-0016156

PATIENT
  Sex: Male

DRUGS (2)
  1. HEPSERA [Suspect]
  2. LAMIVUDINE [Concomitant]

REACTIONS (1)
  - BLOOD LACTIC ACID INCREASED [None]
